FAERS Safety Report 18864700 (Version 2)
Quarter: 2021Q1

REPORT INFORMATION
  Report Type: Spontaneous
  Country: DE (occurrence: DE)
  Receive Date: 20210209
  Receipt Date: 20210225
  Transmission Date: 20210420
  Serious: Yes (Hospitalization, Other)
  Sender: FDA-Public Use
  Company Number: NVSC2021DE022530

PATIENT
  Age: 55 Year
  Sex: Male
  Weight: 117 kg

DRUGS (4)
  1. PEMBROLIZUMAB. [Suspect]
     Active Substance: PEMBROLIZUMAB
     Dosage: 200 MG
     Route: 065
     Dates: start: 20201016, end: 20201016
  2. PACLITAXEL. [Suspect]
     Active Substance: PACLITAXEL
     Indication: NON-SMALL CELL LUNG CANCER
     Dosage: 166 MG
     Route: 065
     Dates: start: 20201016
  3. CARBOPLATIN. [Suspect]
     Active Substance: CARBOPLATIN
     Indication: NON-SMALL CELL LUNG CANCER
     Dosage: 476 MG
     Route: 065
     Dates: start: 20201016, end: 20201016
  4. PEMBROLIZUMAB. [Suspect]
     Active Substance: PEMBROLIZUMAB
     Indication: NON-SMALL CELL LUNG CANCER
     Dosage: 200 MG
     Route: 065
     Dates: start: 2020

REACTIONS (7)
  - Headache [Unknown]
  - Blood count abnormal [Unknown]
  - Malignant neoplasm progression [Unknown]
  - Tongue biting [Unknown]
  - Infection [Unknown]
  - Seizure [Recovered/Resolved]
  - Amnesia [Unknown]

NARRATIVE: CASE EVENT DATE: 2020
